FAERS Safety Report 6558359-5 (Version None)
Quarter: 2010Q1

REPORT INFORMATION
  Report Type: 
  Country: None (occurrence: None)
  Receive Date: 20100129
  Receipt Date: 20100125
  Transmission Date: 20100710
  Serious: Yes (Death)
  Sender: FDA-Public Use
  Company Number: FR-MERCK-1001FRA00054

PATIENT
  Age: 80 Year
  Sex: Male

DRUGS (11)
  1. COZAAR [Suspect]
     Route: 048
  2. LEUPROLIDE ACETATE [Suspect]
     Route: 058
     Dates: start: 20090207
  3. REPAGLINIDE [Suspect]
     Route: 048
  4. ENTACAPONE [Suspect]
     Route: 048
  5. BENSERAZIDE HYDROCHLORIDE AND LEVODOPA [Suspect]
     Route: 048
  6. METFORMIN [Suspect]
     Route: 048
  7. ATORVASTATIN CALCIUM [Suspect]
     Route: 048
  8. MEPROBAMATE [Suspect]
     Route: 048
  9. MIANSERIN HYDROCHLORIDE [Suspect]
     Route: 048
  10. BROMAZEPAM [Suspect]
     Route: 048
  11. POLYETHYLENE GLYCOL 4000 [Suspect]
     Route: 048

REACTIONS (1)
  - DEATH [None]
